FAERS Safety Report 4470672-4 (Version None)
Quarter: 2004Q4

REPORT INFORMATION
  Report Type: 
  Country: None (occurrence: None)
  Receive Date: 20041006
  Receipt Date: 20041006
  Transmission Date: 20050328
  Serious: Yes (Other)
  Sender: FDA-Public Use
  Company Number: None

PATIENT
  Sex: Female
  Weight: 65.7716 kg

DRUGS (1)
  1. DEXTROAMPHETAMINE 10 MG [Suspect]
     Indication: ATTENTION DEFICIT/HYPERACTIVITY DISORDER
     Dosage: 50 MG TID PO
     Route: 048

REACTIONS (3)
  - RASH MACULO-PAPULAR [None]
  - RASH PRURITIC [None]
  - STOMATITIS [None]
